FAERS Safety Report 23299990 (Version 3)
Quarter: 2024Q1

REPORT INFORMATION
  Report Type: Spontaneous
  Country: JP (occurrence: JP)
  Receive Date: 20231215
  Receipt Date: 20240223
  Transmission Date: 20240410
  Serious: Yes (Hospitalization, Other)
  Sender: FDA-Public Use
  Company Number: JP-UCBSA-2023058755

PATIENT
  Age: 88 Year
  Sex: Female
  Weight: 42.1 kg

DRUGS (10)
  1. VIMPAT [Suspect]
     Active Substance: LACOSAMIDE
     Indication: Facial spasm
     Dosage: 100 MILLIGRAM, 2X/DAY (BID)
     Route: 048
     Dates: end: 20210615
  2. VIMPAT [Suspect]
     Active Substance: LACOSAMIDE
     Indication: Off label use
  3. DISTIGMINE BROMIDE [Concomitant]
     Active Substance: DISTIGMINE BROMIDE
     Indication: Product used for unknown indication
     Dosage: 2.5 MILLIGRAM PER DAY
     Route: 048
  4. CANDESARTAN [Concomitant]
     Active Substance: CANDESARTAN
     Indication: Product used for unknown indication
     Dosage: 8 MILLIGRAM PER DAY
     Route: 048
  5. BAZEDOXIFENE [BAZEDOXIFENE ACETATE] [Concomitant]
     Indication: Product used for unknown indication
     Dosage: 20 MILLIGRAM PER DAY
     Route: 048
  6. NIFEDIPINE [Concomitant]
     Active Substance: NIFEDIPINE
     Indication: Product used for unknown indication
     Dosage: 20 MILLIGRAM PER DAY
     Route: 048
  7. METHYLCOBALAMIN [Concomitant]
     Active Substance: METHYLCOBALAMIN
     Indication: Product used for unknown indication
     Dosage: 500 MICROGRAM, 2X/DAY (BID)
     Route: 048
  8. MAGNESIUM OXIDE [Concomitant]
     Active Substance: MAGNESIUM OXIDE
     Indication: Product used for unknown indication
     Dosage: 500 MILLIGRAM, 2X/DAY (BID)
     Route: 048
  9. BELSOMRA [Concomitant]
     Active Substance: SUVOREXANT
     Indication: Product used for unknown indication
     Dosage: 15 MILLIGRAM PER DAY
     Route: 048
  10. URAPIDIL [Concomitant]
     Active Substance: URAPIDIL
     Indication: Product used for unknown indication
     Dosage: 15 MILLIGRAM PER DAY
     Route: 048

REACTIONS (2)
  - Sinus node dysfunction [Unknown]
  - Off label use [Unknown]

NARRATIVE: CASE EVENT DATE: 20210615
